FAERS Safety Report 10159662 (Version 1)
Quarter: 2014Q2

REPORT INFORMATION
  Report Type: Spontaneous
  Country: US (occurrence: US)
  Receive Date: 20140508
  Receipt Date: 20140508
  Transmission Date: 20141212
  Serious: No
  Sender: FDA-Public Use
  Company Number: US-GLAXOSMITHKLINE-A1020054A

PATIENT
  Age: 59 Year
  Sex: Female

DRUGS (8)
  1. TYKERB [Suspect]
     Indication: BREAST CANCER METASTATIC
     Dosage: 1250MG PER DAY
     Route: 048
     Dates: start: 20130403
  2. XELODA [Suspect]
     Indication: BREAST CANCER METASTATIC
     Dosage: 1500MG TWICE PER DAY
     Route: 048
     Dates: start: 20130404
  3. ASPIRIN [Concomitant]
  4. ZETIA [Concomitant]
  5. ZOLOFT [Concomitant]
  6. PANTOPRAZOLE [Concomitant]
  7. AMBIEN [Concomitant]
  8. CRESTOR [Concomitant]

REACTIONS (4)
  - Nausea [Not Recovered/Not Resolved]
  - Stomatitis [Unknown]
  - Diarrhoea [Unknown]
  - Erythema [Unknown]
